FAERS Safety Report 5046727-2 (Version None)
Quarter: 2006Q2

REPORT INFORMATION
  Report Type: 
  Country: None (occurrence: None)
  Receive Date: 20060601
  Receipt Date: 20060314
  Transmission Date: 20061013
  Serious: No
  Sender: FDA-Public Use
  Company Number: 2006PV010240

PATIENT
  Age: 63 Year
  Sex: Male
  Weight: 145.151 kg

DRUGS (4)
  1. BYETTA [Suspect]
     Indication: DIABETES MELLITUS NON-INSULIN-DEPENDENT
     Dosage: 5 MCG;BID;SC
     Route: 058
     Dates: start: 20060306
  2. METFORMIN [Concomitant]
  3. GLYBURIDE AND METFORMIN HCL [Concomitant]
  4. INSULIN [Concomitant]

REACTIONS (7)
  - DECREASED APPETITE [None]
  - DYSPEPSIA [None]
  - HEADACHE [None]
  - HYPERCHLORHYDRIA [None]
  - NAUSEA [None]
  - THERAPEUTIC RESPONSE UNEXPECTED [None]
  - WEIGHT DECREASED [None]
